FAERS Safety Report 9655107 (Version 1)
Quarter: 2013Q4

REPORT INFORMATION
  Report Type: Spontaneous
  Country: US (occurrence: US)
  Receive Date: 20131029
  Receipt Date: 20131029
  Transmission Date: 20140711
  Serious: No
  Sender: FDA-Public Use
  Company Number: US-PURDUE-USA-2012-0094107

PATIENT
  Sex: Male
  Weight: 83.45 kg

DRUGS (7)
  1. OXYCONTIN (NDA 22-272) [Suspect]
     Indication: PAIN
     Dosage: 40 MG, UNK
     Route: 048
     Dates: start: 2007, end: 2008
  2. VICODIN [Concomitant]
     Indication: PAIN
     Dosage: 2 TABLET, PRN
     Route: 048
  3. DIOVAN HCT [Concomitant]
     Indication: BLOOD PRESSURE
     Dosage: 1 TABLET, DAILY
     Route: 048
  4. OMEPRAZOLE [Concomitant]
     Indication: GASTROOESOPHAGEAL REFLUX DISEASE
     Dosage: 20 MG, DAILY
     Route: 048
  5. TIZANIDINE HYDROCHLORIDE [Concomitant]
     Indication: PRODUCT USED FOR UNKNOWN INDICATION
     Dosage: 4 MG, TID
     Route: 048
  6. VITAMIN K NOS [Concomitant]
     Indication: PRODUCT USED FOR UNKNOWN INDICATION
     Dosage: 595 MG, DAILY
     Route: 048
  7. GLUCONATE SODIUM [Concomitant]
     Indication: PRODUCT USED FOR UNKNOWN INDICATION
     Dosage: UNK
     Route: 065

REACTIONS (3)
  - Psychomotor hyperactivity [Recovered/Resolved]
  - Loss of libido [Recovered/Resolved]
  - Pruritus [Recovered/Resolved]
